FAERS Safety Report 24195774 (Version 6)
Quarter: 2025Q2

REPORT INFORMATION
  Report Type: Spontaneous
  Country: US (occurrence: US)
  Receive Date: 20240809
  Receipt Date: 20250617
  Transmission Date: 20250716
  Serious: Yes (Disabling, Other)
  Sender: SANOFI AVENTIS
  Company Number: US-SA-SAC20240809000062

PATIENT
  Age: 54 Year
  Sex: Male

DRUGS (27)
  1. DUPIXENT [Suspect]
     Active Substance: DUPILUMAB
     Indication: Asthma
     Route: 058
     Dates: start: 20240604, end: 20240604
  2. DUPIXENT [Suspect]
     Active Substance: DUPILUMAB
     Dosage: 300 MG, QOW
     Route: 058
  3. FARXIGA [Concomitant]
     Active Substance: DAPAGLIFLOZIN PROPANEDIOL
  4. LISINOPRIL [Concomitant]
     Active Substance: LISINOPRIL
  5. PANTOPRAZOLE [Concomitant]
     Active Substance: PANTOPRAZOLE
  6. PREGABALIN [Concomitant]
     Active Substance: PREGABALIN
  7. TAMSULOSIN [Concomitant]
     Active Substance: TAMSULOSIN
  8. TERBUTALINE [Concomitant]
     Active Substance: TERBUTALINE
  9. TRAZODONE [Concomitant]
     Active Substance: TRAZODONE HYDROCHLORIDE
  10. TRELEGY ELLIPTA [Concomitant]
     Active Substance: FLUTICASONE FUROATE\UMECLIDINIUM BROMIDE\VILANTEROL TRIFENATATE
  11. ALBUTEROL SULFATE [Concomitant]
     Active Substance: ALBUTEROL SULFATE
  12. HYDROXYCHLOROQUINE [Concomitant]
     Active Substance: HYDROXYCHLOROQUINE
  13. METHYLPREDNISOLONE [Concomitant]
     Active Substance: METHYLPREDNISOLONE
  14. OXYCODONE [Concomitant]
     Active Substance: OXYCODONE
  15. LORAZEPAM [Concomitant]
     Active Substance: LORAZEPAM
  16. AZELASTINE HYDROCHLORIDE\FLUTICASONE PROPIONATE [Concomitant]
     Active Substance: AZELASTINE HYDROCHLORIDE\FLUTICASONE PROPIONATE
  17. HUMIRA [Concomitant]
     Active Substance: ADALIMUMAB
  18. OZEMPIC [Concomitant]
     Active Substance: SEMAGLUTIDE
  19. MONTELUKAST [Concomitant]
     Active Substance: MONTELUKAST
  20. METHYLPREDNISOLONE [Concomitant]
     Active Substance: METHYLPREDNISOLONE
  21. TRIAMCINOLONE [Concomitant]
     Active Substance: TRIAMCINOLONE
  22. AZITHROMYCIN [Concomitant]
     Active Substance: AZITHROMYCIN
  23. FLUTICASONE [Concomitant]
     Active Substance: FLUTICASONE
  24. METOCLOPRAMIDE [Concomitant]
     Active Substance: METOCLOPRAMIDE
  25. NALOXONE HCL [Concomitant]
     Active Substance: NALOXONE HYDROCHLORIDE
  26. MELOXICAM [Concomitant]
     Active Substance: MELOXICAM
  27. MELOXICAM [Concomitant]
     Active Substance: MELOXICAM

REACTIONS (6)
  - Squamous cell carcinoma [Unknown]
  - Loss of personal independence in daily activities [Unknown]
  - Impaired quality of life [Unknown]
  - Pain [Unknown]
  - Asthma [Recovering/Resolving]
  - Drug ineffective [Unknown]

NARRATIVE: CASE EVENT DATE: 20240101
